FAERS Safety Report 24620729 (Version 3)
Quarter: 2025Q1

REPORT INFORMATION
  Report Type: Report from Study
  Country: US (occurrence: US)
  Receive Date: 20241114
  Receipt Date: 20250210
  Transmission Date: 20250409
  Serious: Yes (Other)
  Sender: ROCHE
  Company Number: US-ROCHE-10000131444

PATIENT
  Age: 70 Year
  Sex: Female

DRUGS (3)
  1. XOLAIR PFS [Suspect]
     Active Substance: OMALIZUMAB
     Indication: Urticaria
     Dosage: INJECT 300MG(2ML) SUBCUTANEOUSLY EVERY 4 WEEK(S)
     Route: 058
  2. XOLAIR PFS [Suspect]
     Active Substance: OMALIZUMAB
  3. XOLAIR PFS [Suspect]
     Active Substance: OMALIZUMAB
     Indication: Urticaria
     Dosage: INJECT THE CONTENTS OF 1 DEVICE(S) UNDER THE SKIN EVERY 2 WEEK(S)
     Route: 058

REACTIONS (4)
  - Urticaria [Not Recovered/Not Resolved]
  - Myocardial infarction [Unknown]
  - Cardiac dysfunction [Unknown]
  - Off label use [Unknown]
